FAERS Safety Report 8925005 (Version 1)
Quarter: 2012Q4

REPORT INFORMATION
  Report Type: Spontaneous
  Country: US (occurrence: None)
  Receive Date: 20121126
  Receipt Date: 20121126
  Transmission Date: 20130627
  Serious: Yes (Disabling)
  Sender: FDA-Public Use
  Company Number: None

PATIENT
  Age: 63 Year
  Sex: Female
  Weight: 81.65 kg

DRUGS (1)
  1. SPIRIVA [Suspect]
     Indication: COPD
     Route: 055

REACTIONS (3)
  - Visual impairment [None]
  - Impaired driving ability [None]
  - Blindness [None]
